FAERS Safety Report 4338039-7 (Version None)
Quarter: 2004Q2

REPORT INFORMATION
  Report Type: 
  Country: None (occurrence: None)
  Receive Date: 20040407
  Receipt Date: 20040319
  Transmission Date: 20050107
  Serious: Yes (Hospitalization)
  Sender: FDA-Public Use
  Company Number: B0324341A

PATIENT
  Sex: Female

DRUGS (1)
  1. PAXIL [Suspect]
     Dosage: TRANSPLACENTARY
     Route: 064

REACTIONS (10)
  - BLOOD LACTIC ACID INCREASED [None]
  - BRADYCARDIA NEONATAL [None]
  - CLONUS [None]
  - CONVULSION NEONATAL [None]
  - CYANOSIS NEONATAL [None]
  - DRUG WITHDRAWAL SYNDROME NEONATAL [None]
  - HYPERTONIA [None]
  - HYPOPNOEA [None]
  - HYPOTONIA [None]
  - MATERNAL DRUGS AFFECTING FOETUS [None]
